FAERS Safety Report 4958363-4 (Version None)
Quarter: 2006Q1

REPORT INFORMATION
  Report Type: 
  Country: None (occurrence: None)
  Receive Date: 20060329
  Receipt Date: 20060329
  Transmission Date: 20060701
  Serious: Yes (Disabling)
  Sender: FDA-Public Use
  Company Number: None

PATIENT
  Age: 53 Year
  Sex: Female
  Weight: 65.7716 kg

DRUGS (5)
  1. PEGASYS [Suspect]
     Indication: HEPATITIS C
     Dosage: 1000 UNITS QWEEK IV
     Route: 042
     Dates: start: 20030310, end: 20030610
  2. COPEGUS [Suspect]
     Dosage: 5 TABLETS DAILY PO
     Route: 048
  3. LANOXIN [Concomitant]
  4. VALIUM [Concomitant]
  5. ATENOLOL [Concomitant]

REACTIONS (12)
  - ATROPHY [None]
  - BLINDNESS [None]
  - EYE PAIN [None]
  - EYELID DISORDER [None]
  - FATIGUE [None]
  - FEELING ABNORMAL [None]
  - HALLUCINATION [None]
  - INFLUENZA LIKE ILLNESS [None]
  - KERATITIS [None]
  - LETHARGY [None]
  - PHOTOPHOBIA [None]
  - VITREOUS DETACHMENT [None]
